FAERS Safety Report 7552306-5 (Version None)
Quarter: 2011Q2

REPORT INFORMATION
  Report Type: 
  Country: None (occurrence: None)
  Receive Date: 20110616
  Receipt Date: 20050524
  Transmission Date: 20111010
  Serious: Yes (Other)
  Sender: FDA-Public Use
  Company Number: PHHO2005CA08357

PATIENT
  Sex: Male

DRUGS (1)
  1. DIOVAN [Suspect]

REACTIONS (1)
  - LOSS OF CONSCIOUSNESS [None]
